FAERS Safety Report 10912065 (Version 1)
Quarter: 2015Q1

REPORT INFORMATION
  Report Type: Spontaneous
  Country: US (occurrence: None)
  Receive Date: 20150310
  Receipt Date: 20150310
  Transmission Date: 20150721
  Serious: Yes (Hospitalization, Other)
  Sender: FDA-Public Use
  Company Number: None

PATIENT
  Age: 72 Year
  Sex: Female

DRUGS (5)
  1. DIGOXIN. [Concomitant]
     Active Substance: DIGOXIN
  2. TOPIRNATE [Concomitant]
  3. NORTRIPYENE [Concomitant]
  4. PROLIA [Suspect]
     Active Substance: DENOSUMAB
     Dosage: TWICE A YEAR, INJECTION
  5. BENICAR [Concomitant]
     Active Substance: OLMESARTAN MEDOXOMIL

REACTIONS (8)
  - Bone loss [None]
  - Gingival atrophy [None]
  - Back pain [None]
  - Skin lesion [None]
  - Product quality issue [None]
  - Skin atrophy [None]
  - Gingival disorder [None]
  - Rash [None]
